FAERS Safety Report 18274683 (Version 1)
Quarter: 2020Q3

REPORT INFORMATION
  Report Type: Spontaneous
  Country: US (occurrence: US)
  Receive Date: 20200916
  Receipt Date: 20200916
  Transmission Date: 20201103
  Serious: No
  Sender: FDA-Public Use
  Company Number: US-ABBVIE-20K-163-3496358-00

PATIENT
  Sex: Female

DRUGS (1)
  1. RINVOQ [Suspect]
     Active Substance: UPADACITINIB
     Indication: RHEUMATOID ARTHRITIS
     Dosage: PATIENT ON THERAPY FOR 1.5 WEEKS
     Route: 050

REACTIONS (6)
  - Somnolence [Unknown]
  - White blood cell count increased [Unknown]
  - Breath odour [Unknown]
  - Dizziness [Unknown]
  - Asthenia [Unknown]
  - Productive cough [Unknown]
